FAERS Safety Report 25436431 (Version 1)
Quarter: 2025Q2

REPORT INFORMATION
  Report Type: Spontaneous
  Country: JP (occurrence: JP)
  Receive Date: 20250614
  Receipt Date: 20250614
  Transmission Date: 20250717
  Serious: Yes (Hospitalization)
  Sender: UNITED THERAPEUTICS
  Company Number: JP-UNITED THERAPEUTICS-UNT-2025-017181

PATIENT
  Age: 7 Year
  Sex: Female

DRUGS (12)
  1. UNITUXIN [Suspect]
     Active Substance: DINUTUXIMAB
     Indication: Ganglioneuroblastoma
     Route: 041
  2. UNITUXIN [Suspect]
     Active Substance: DINUTUXIMAB
     Route: 041
  3. UNITUXIN [Suspect]
     Active Substance: DINUTUXIMAB
     Route: 041
  4. UNITUXIN [Suspect]
     Active Substance: DINUTUXIMAB
     Route: 041
  5. UNITUXIN [Suspect]
     Active Substance: DINUTUXIMAB
     Route: 041
  6. UNITUXIN [Suspect]
     Active Substance: DINUTUXIMAB
     Route: 041
  7. FILGRASTIM [Concomitant]
     Active Substance: FILGRASTIM
     Indication: Ganglioneuroblastoma
  8. FILGRASTIM [Concomitant]
     Active Substance: FILGRASTIM
  9. FILGRASTIM [Concomitant]
     Active Substance: FILGRASTIM
  10. TECELEUKIN [Concomitant]
     Active Substance: TECELEUKIN
     Indication: Ganglioneuroblastoma
  11. TECELEUKIN [Concomitant]
     Active Substance: TECELEUKIN
  12. TECELEUKIN [Concomitant]
     Active Substance: TECELEUKIN

REACTIONS (10)
  - Hepatic enzyme increased [Unknown]
  - Hepatic enzyme increased [Unknown]
  - Hepatic enzyme increased [Unknown]
  - Hepatic enzyme increased [Unknown]
  - Pyrexia [Unknown]
  - Pyrexia [Unknown]
  - Oxygen saturation decreased [Unknown]
  - Generalised oedema [Unknown]
  - Chest pain [Unknown]
  - Short stature [Unknown]
